FAERS Safety Report 10256334 (Version 2)
Quarter: 2016Q4

REPORT INFORMATION
  Report Type: Spontaneous
  Country: FR (occurrence: FR)
  Receive Date: 20140624
  Receipt Date: 20161123
  Transmission Date: 20170206
  Serious: Yes (Hospitalization)
  Sender: FDA-Public Use
  Company Number: FR-JNJFOC-20140207571

PATIENT
  Age: 65 Year
  Sex: Male

DRUGS (16)
  1. KETAMINE [Suspect]
     Active Substance: KETAMINE
     Indication: ANAESTHESIA
     Route: 042
     Dates: start: 20130924, end: 20130924
  2. EUPANTOL [Suspect]
     Active Substance: PANTOPRAZOLE SODIUM
     Indication: PROPHYLAXIS AGAINST GASTROINTESTINAL ULCER
     Route: 048
     Dates: start: 20130925, end: 20130929
  3. DROLEPTAN [Suspect]
     Active Substance: DROPERIDOL
     Indication: PROCEDURAL VOMITING
     Route: 042
     Dates: start: 20130924, end: 20130926
  4. PARACETAMOL [Suspect]
     Active Substance: ACETAMINOPHEN
     Indication: POSTOPERATIVE ANALGESIA
     Route: 042
     Dates: start: 20130924, end: 20130926
  5. EXACYL [Suspect]
     Active Substance: TRANEXAMIC ACID
     Indication: HAEMORRHAGE
     Route: 042
     Dates: start: 20130924, end: 20130924
  6. MORPHINE [Suspect]
     Active Substance: MORPHINE
     Indication: POSTOPERATIVE ANALGESIA
     Route: 042
     Dates: start: 20130924, end: 20130925
  7. DIPRIVAN [Suspect]
     Active Substance: PROPOFOL
     Indication: ANAESTHESIA
     Route: 042
     Dates: start: 20130924, end: 20130924
  8. NEFOPAM HYDROCHLORIDE [Suspect]
     Active Substance: NEFOPAM HYDROCHLORIDE
     Indication: POSTOPERATIVE ANALGESIA
     Route: 042
     Dates: start: 20130924, end: 20130926
  9. ONDANSETRON [Suspect]
     Active Substance: ONDANSETRON
     Indication: PROCEDURAL VOMITING
     Route: 042
     Dates: start: 20130924, end: 20130924
  10. DEXAMETHASONE. [Suspect]
     Active Substance: DEXAMETHASONE
     Indication: PROCEDURAL VOMITING
     Route: 042
     Dates: start: 20130924, end: 20130924
  11. TRIATEC [Concomitant]
     Active Substance: RAMIPRIL
     Route: 065
  12. SUFENTA [Suspect]
     Active Substance: SUFENTANIL CITRATE
     Indication: ANAESTHESIA
     Route: 042
     Dates: start: 20130924, end: 20130924
  13. HYPNOVEL [Suspect]
     Active Substance: MIDAZOLAM\MIDAZOLAM HYDROCHLORIDE
     Indication: ANAESTHESIA
     Route: 042
     Dates: start: 20130924, end: 20130924
  14. NIMBEX [Suspect]
     Active Substance: CISATRACURIUM BESYLATE
     Indication: ANAESTHESIA
     Route: 042
     Dates: start: 20130924, end: 20130924
  15. XARELTO [Suspect]
     Active Substance: RIVAROXABAN
     Indication: PRODUCT USED FOR UNKNOWN INDICATION
     Route: 048
     Dates: start: 20130925, end: 20131029
  16. PROFENID [Suspect]
     Active Substance: KETOPROFEN
     Indication: PRODUCT USED FOR UNKNOWN INDICATION
     Route: 042
     Dates: start: 20130924, end: 20130926

REACTIONS (1)
  - Mania [Recovered/Resolved]

NARRATIVE: CASE EVENT DATE: 20130925
